FAERS Safety Report 11096492 (Version 1)
Quarter: 2015Q2

REPORT INFORMATION
  Report Type: Other
  Country: IT (occurrence: IT)
  Receive Date: 20150507
  Receipt Date: 20150507
  Transmission Date: 20150821
  Serious: Yes (Other)
  Sender: FDA-Public Use
  Company Number: IT-EMD SERONO-8023784

PATIENT
  Age: 31 Year
  Sex: Female

DRUGS (2)
  1. GONAL-F [Suspect]
     Active Substance: FOLLITROPIN
     Indication: IN VITRO FERTILISATION
  2. LUVERIS [Suspect]
     Active Substance: LUTROPIN ALFA
     Indication: IN VITRO FERTILISATION

REACTIONS (1)
  - Choroidal neovascularisation [Recovering/Resolving]
